FAERS Safety Report 7962613-X (Version None)
Quarter: 2011Q4

REPORT INFORMATION
  Report Type: 
  Country: None (occurrence: None)
  Receive Date: 20111207
  Receipt Date: 20111202
  Transmission Date: 20120403
  Serious: Yes (Hospitalization)
  Sender: FDA-Public Use
  Company Number: US-JNJFOC-20111202553

PATIENT
  Sex: Female
  Weight: 67.59 kg

DRUGS (5)
  1. LYRICA [Suspect]
     Indication: ARTHRALGIA
  2. METHOTREXATE [Concomitant]
     Indication: RHEUMATOID ARTHRITIS
  3. SIMPONI [Suspect]
     Indication: RHEUMATOID ARTHRITIS
     Route: 058
     Dates: start: 20090101
  4. RECLAST [Concomitant]
     Indication: SPINAL DISORDER
     Route: 042
  5. LYRICA [Suspect]
     Indication: PAIN IN EXTREMITY

REACTIONS (7)
  - BODY HEIGHT DECREASED [None]
  - PAIN IN EXTREMITY [None]
  - SPINAL FRACTURE [None]
  - INTERVERTEBRAL DISC PROTRUSION [None]
  - PAIN [None]
  - FALL [None]
  - BALANCE DISORDER [None]
